FAERS Safety Report 10209422 (Version 3)
Quarter: 2014Q2

REPORT INFORMATION
  Report Type: Spontaneous
  Country: JP (occurrence: JP)
  Receive Date: 20140601
  Receipt Date: 20140606
  Transmission Date: 20141212
  Serious: Yes (Hospitalization)
  Sender: FDA-Public Use
  Company Number: JP-MERCK-1405JPN013239

PATIENT
  Age: 9 Year
  Sex: Male

DRUGS (5)
  1. DEXAMETHASONE [Suspect]
     Indication: NAUSEA
  2. METHOTREXATE [Suspect]
     Indication: OSTEOSARCOMA
     Dosage: HIGH-DOSE
     Route: 041
  3. DOXORUBICIN [Suspect]
     Indication: OSTEOSARCOMA
     Route: 041
  4. APREPITANT [Concomitant]
     Indication: NAUSEA
     Route: 048
  5. CISPLATIN [Concomitant]
     Indication: OSTEOSARCOMA
     Route: 041

REACTIONS (2)
  - Peptic ulcer [Recovered/Resolved]
  - Intestinal perforation [Recovered/Resolved]
